FAERS Safety Report 5320583-7 (Version None)
Quarter: 2007Q1

REPORT INFORMATION
  Report Type: 
  Country: None (occurrence: None)
  Receive Date: 20070209
  Receipt Date: 20061031
  Transmission Date: 20070707
  Serious: No
  Sender: FDA-Public Use
  Company Number: 200619010US

PATIENT
  Age: 15 Year
  Sex: Female

DRUGS (1)
  1. APIDRA [Suspect]
     Dates: start: 20061026, end: 20061029

REACTIONS (2)
  - DYSPEPSIA [None]
  - NAUSEA [None]
